FAERS Safety Report 5968552-8 (Version None)
Quarter: 2008Q4

REPORT INFORMATION
  Report Type: 
  Country: None (occurrence: None)
  Receive Date: 20081119
  Receipt Date: 20081006
  Transmission Date: 20090506
  Serious: No
  Sender: FDA-Public Use
  Company Number: WAES 0804USA01996

PATIENT
  Age: 86 Year
  Sex: Male

DRUGS (6)
  1. JANUVIA [Suspect]
     Indication: TYPE 2 DIABETES MELLITUS
     Dosage: 100 MG/BID
     Dates: start: 20080101
  2. JANUVIA [Suspect]
     Indication: TYPE 2 DIABETES MELLITUS
     Dosage: 100 MG/DAILY/PO
     Route: 048
     Dates: start: 20080405
  3. PLAVIX [Concomitant]
  4. METFORMIN HCL [Concomitant]
  5. METOPROLOL TARTRATE [Concomitant]
  6. TERAZOSIN HYDROCHOLRIDE [Concomitant]

REACTIONS (4)
  - DRUG INEFFECTIVE [None]
  - DRY THROAT [None]
  - INSOMNIA [None]
  - OVERDOSE [None]
